FAERS Safety Report 5272341-X (Version None)
Quarter: 2007Q1

REPORT INFORMATION
  Report Type: 
  Country: None (occurrence: None)
  Receive Date: 20070320
  Receipt Date: 20070320
  Transmission Date: 20070707
  Serious: Yes (Life-Threatening, Hospitalization)
  Sender: FDA-Public Use
  Company Number: None

PATIENT
  Sex: Male
  Weight: 78 kg

DRUGS (5)
  1. ASPIRIN [Suspect]
     Dosage: 81MG DAILY (PO)
     Route: 048
     Dates: start: 19940101, end: 20060101
  2. CLOPIDOGREL [Suspect]
     Dosage: 75MG DAILY (PO)
     Route: 048
     Dates: start: 20060407
  3. PREDNISONE [Concomitant]
  4. R-CVP (CHEMOTHERAPY) [Concomitant]
  5. OMEPRAZOLE [Concomitant]

REACTIONS (4)
  - ACUTE MYOCARDIAL INFARCTION [None]
  - GASTRIC CANCER [None]
  - GASTRIC ULCER [None]
  - UPPER GASTROINTESTINAL HAEMORRHAGE [None]
